FAERS Safety Report 4398433-5 (Version None)
Quarter: 2004Q3

REPORT INFORMATION
  Report Type: 
  Country: None (occurrence: None)
  Receive Date: 20040712
  Receipt Date: 20040624
  Transmission Date: 20050211
  Serious: Yes (Hospitalization)
  Sender: FDA-Public Use
  Company Number: 200411463JP

PATIENT
  Age: 60 Year
  Sex: Female
  Weight: 49 kg

DRUGS (11)
  1. ARAVA [Suspect]
     Indication: RHEUMATOID ARTHRITIS
     Dosage: 100 MG/DAY PO
     Route: 048
     Dates: start: 20031108, end: 20031110
  2. ARAVA [Suspect]
     Indication: RHEUMATOID ARTHRITIS
     Dosage: 20 MG/DAY PO
     Route: 048
     Dates: start: 20031111, end: 20031202
  3. ARAVA [Suspect]
     Indication: RHEUMATOID ARTHRITIS
     Dosage: 10 MG/DAY PO
     Route: 048
     Dates: start: 20031203, end: 20040320
  4. PREDNISOLONE [Concomitant]
  5. ALFAROL [Concomitant]
  6. THYRADIN S [Concomitant]
  7. FLUITRAN [Concomitant]
  8. JUVELA N [Concomitant]
  9. GASTER [Concomitant]
  10. CALSLOT [Concomitant]
  11. CALSLOT [Concomitant]

REACTIONS (13)
  - ALANINE AMINOTRANSFERASE INCREASED [None]
  - ASPARTATE AMINOTRANSFERASE INCREASED [None]
  - BLOOD ALKALINE PHOSPHATASE INCREASED [None]
  - BLOOD BILIRUBIN INCREASED [None]
  - BLOOD LACTATE DEHYDROGENASE INCREASED [None]
  - CHROMATURIA [None]
  - DIARRHOEA [None]
  - ENTERITIS [None]
  - GAMMA-GLUTAMYLTRANSFERASE INCREASED [None]
  - HYPERTENSION [None]
  - JAUNDICE [None]
  - MALAISE [None]
  - PYREXIA [None]
